FAERS Safety Report 21416338 (Version 1)
Quarter: 2022Q4

REPORT INFORMATION
  Report Type: Spontaneous
  Country: US (occurrence: US)
  Receive Date: 20221006
  Receipt Date: 20221006
  Transmission Date: 20230112
  Serious: No
  Sender: FDA-Public Use
  Company Number: US-ALLERGAN-2212124US

PATIENT
  Age: 51 Year
  Sex: Male

DRUGS (6)
  1. VRAYLAR [Suspect]
     Active Substance: CARIPRAZINE
     Indication: Bipolar disorder
     Dosage: 3 MG, QD
     Route: 048
  2. VRAYLAR [Suspect]
     Active Substance: CARIPRAZINE
     Dosage: 4.5 MG, QHS
     Route: 048
     Dates: start: 20210830, end: 20220315
  3. CAPLYTA [Suspect]
     Active Substance: LUMATEPERONE
     Indication: Schizophrenia
     Dosage: 42 MG, QD
     Route: 048
     Dates: start: 20220209, end: 20220307
  4. LAMOTRIGINE [Concomitant]
     Active Substance: LAMOTRIGINE
  5. NALTREXONE [Concomitant]
     Active Substance: NALTREXONE
  6. LASIX [Concomitant]
     Active Substance: FUROSEMIDE

REACTIONS (3)
  - Akathisia [Recovered/Resolved]
  - Anxiety [Unknown]
  - Restlessness [Unknown]

NARRATIVE: CASE EVENT DATE: 20220302
